FAERS Safety Report 6149985-6 (Version None)
Quarter: 2009Q2

REPORT INFORMATION
  Report Type: 
  Country: None (occurrence: None)
  Receive Date: 20090409
  Receipt Date: 20090402
  Transmission Date: 20091009
  Serious: Yes (Hospitalization)
  Sender: FDA-Public Use
  Company Number: A0777817A

PATIENT
  Age: 25 Year
  Sex: Female
  Weight: 82 kg

DRUGS (5)
  1. AUGMENTIN '125' [Suspect]
     Indication: BRONCHITIS
     Dates: start: 20090201
  2. REBIF [Suspect]
     Indication: MULTIPLE SCLEROSIS
     Dosage: 44MCG THREE TIMES PER WEEK
     Route: 058
     Dates: start: 20080801
  3. LORAZEPAM [Concomitant]
  4. CYMBALTA [Concomitant]
  5. GABAPENTIN [Concomitant]

REACTIONS (3)
  - HEMIPARESIS [None]
  - HYPOAESTHESIA [None]
  - MULTIPLE SCLEROSIS [None]
